FAERS Safety Report 7019565-9 (Version None)
Quarter: 2010Q3

REPORT INFORMATION
  Report Type: 
  Country: None (occurrence: None)
  Receive Date: 20100928
  Receipt Date: 20100928
  Transmission Date: 20110219
  Serious: Yes (Other)
  Sender: FDA-Public Use
  Company Number: None

PATIENT
  Age: 45 Year
  Sex: Female
  Weight: 68.0396 kg

DRUGS (1)
  1. VALACICLOVIR [Suspect]
     Indication: GENITAL HERPES
     Dosage: 1 TABLET TWICE A DAY PO
     Route: 048
     Dates: start: 20100922, end: 20100925

REACTIONS (4)
  - CONDITION AGGRAVATED [None]
  - DRUG INEFFECTIVE [None]
  - HERPES VIRUS INFECTION [None]
  - PRODUCT SUBSTITUTION ISSUE [None]
